FAERS Safety Report 6783293-5 (Version None)
Quarter: 2010Q2

REPORT INFORMATION
  Report Type: 
  Country: None (occurrence: None)
  Receive Date: 20100617
  Receipt Date: 20080325
  Transmission Date: 20101027
  Serious: Yes (Hospitalization, Other)
  Sender: FDA-Public Use
  Company Number: LEO-2010-00493

PATIENT
  Age: 27 Year
  Sex: Female
  Weight: 77.2 kg

DRUGS (2)
  1. INNOHEP [Suspect]
     Indication: THROMBOSIS PROPHYLAXIS
     Dosage: 4500 IU (4500 IU,1 IN 1 D) ; 9000 IU (4500 IU, 2 IN 1 D)
     Dates: start: 20040630, end: 20041103
  2. INNOHEP [Suspect]
     Indication: THROMBOSIS PROPHYLAXIS
     Dosage: 4500 IU (4500 IU,1 IN 1 D) ; 9000 IU (4500 IU, 2 IN 1 D)
     Dates: start: 20041103

REACTIONS (5)
  - CAESAREAN SECTION [None]
  - DRUG EXPOSURE DURING PREGNANCY [None]
  - POSTPARTUM HAEMORRHAGE [None]
  - TOBACCO USER [None]
  - UMBILICAL CORD PROLAPSE [None]
